FAERS Safety Report 7158222-5 (Version None)
Quarter: 2010Q4

REPORT INFORMATION
  Report Type: 
  Country: None (occurrence: None)
  Receive Date: 20101214
  Receipt Date: 20100205
  Transmission Date: 20110411
  Serious: No
  Sender: FDA-Public Use
  Company Number: US-ASTRAZENECA-2010SE13161

PATIENT
  Age: 79 Year
  Sex: Female
  Weight: 59 kg

DRUGS (11)
  1. CRESTOR [Suspect]
     Indication: BLOOD CHOLESTEROL INCREASED
     Route: 048
     Dates: start: 20100123, end: 20100125
  2. NIASPAN [Suspect]
     Indication: BLOOD CHOLESTEROL INCREASED
     Route: 048
     Dates: start: 20100123, end: 20100125
  3. ATORVASTATIN CALCIUM [Concomitant]
  4. LISINOPRIL [Concomitant]
  5. LEVOTHYROXINE [Concomitant]
  6. MONTELUKAST [Concomitant]
  7. CARVEDILOL [Concomitant]
  8. FLUTICASONE PROPIONATE [Concomitant]
  9. SALMETEROL XINAFOATE [Concomitant]
  10. SALBUTAMOL [Concomitant]
  11. OMEPRAZOLE [Concomitant]

REACTIONS (3)
  - PRURITUS [None]
  - RASH [None]
  - SKIN OEDEMA [None]
